FAERS Safety Report 11302936 (Version 1)
Quarter: 2015Q3

REPORT INFORMATION
  Report Type: Spontaneous
  Country: CN (occurrence: CN)
  Receive Date: 20150723
  Receipt Date: 20150723
  Transmission Date: 20151125
  Serious: Yes (Other)
  Sender: FDA-Public Use
  Company Number: CN-009507513-1507CHN007775

PATIENT
  Age: 86 Year
  Sex: Male

DRUGS (2)
  1. TIENAM [Suspect]
     Active Substance: CILASTATIN SODIUM\IMIPENEM
     Indication: PNEUMONIA
     Dosage: 1 G, TID
     Route: 041
     Dates: start: 20150301, end: 20150304
  2. DOXOFYLLINE [Suspect]
     Active Substance: DOXOFYLLINE
     Indication: ASTHMA
     Dosage: 0.2 G, BID
     Route: 042
     Dates: start: 20150302, end: 20150304

REACTIONS (4)
  - Abnormal behaviour [Recovered/Resolved]
  - Language disorder [Recovered/Resolved]
  - Agitation [Recovered/Resolved]
  - Hallucination [Recovered/Resolved]

NARRATIVE: CASE EVENT DATE: 20150304
